FAERS Safety Report 5469413-3 (Version None)
Quarter: 2007Q3

REPORT INFORMATION
  Report Type: 
  Country: None (occurrence: None)
  Receive Date: 20070925
  Receipt Date: 20070925
  Transmission Date: 20080115
  Serious: Yes (Hospitalization)
  Sender: FDA-Public Use
  Company Number: None

PATIENT
  Age: 42 Year
  Sex: Male
  Weight: 73.4827 kg

DRUGS (3)
  1. REMICADE [Suspect]
     Indication: CROHN'S DISEASE
     Dates: start: 20070810, end: 20070824
  2. LISINOPRIL [Concomitant]
  3. OMEPRAZOLE [Concomitant]

REACTIONS (5)
  - CHILLS [None]
  - PAIN [None]
  - PULMONARY EMBOLISM [None]
  - TACHYCARDIA [None]
  - TREMOR [None]
